FAERS Safety Report 19820782 (Version 1)
Quarter: 2021Q3

REPORT INFORMATION
  Report Type: Spontaneous
  Country: US (occurrence: US)
  Receive Date: 20210912
  Receipt Date: 20210912
  Transmission Date: 20211014
  Serious: Yes (Hospitalization)
  Sender: FDA-Public Use
  Company Number: None

PATIENT
  Age: 18 Year
  Sex: Female
  Weight: 53.6 kg

DRUGS (13)
  1. SYMBICORT 160 [Concomitant]
  2. CROMOLYN [Concomitant]
     Active Substance: CROMOLYN
  3. MONTELUKAST [Concomitant]
     Active Substance: MONTELUKAST SODIUM
  4. FAMOTIDINE. [Concomitant]
     Active Substance: FAMOTIDINE
  5. TIOTROPIUM [Concomitant]
     Active Substance: TIOTROPIUM
  6. FLUTICASONE NASAL [Concomitant]
     Active Substance: FLUTICASONE
  7. DUPILUMAB [Suspect]
     Active Substance: DUPILUMAB
     Indication: ANAPHYLACTIC REACTION
     Dosage: ?          OTHER FREQUENCY:Q2WEEKS;?
     Route: 058
     Dates: start: 20210908, end: 20210908
  8. OMALIZUMAB. [Concomitant]
     Active Substance: OMALIZUMAB
     Dates: end: 20210716
  9. CETIRIZINE [Concomitant]
     Active Substance: CETIRIZINE HYDROCHLORIDE
  10. ZILEUTEON [Concomitant]
  11. SERTRALINE [Concomitant]
     Active Substance: SERTRALINE HYDROCHLORIDE
  12. OMEPRAZOLE. [Concomitant]
     Active Substance: OMEPRAZOLE
  13. ADALAPENE [Concomitant]

REACTIONS (5)
  - Cardio-respiratory arrest [None]
  - Immune tolerance induction [None]
  - Off label use [None]
  - Anaphylactic reaction [None]
  - Procedural failure [None]

NARRATIVE: CASE EVENT DATE: 20210908
